FAERS Safety Report 9512391 (Version 1)
Quarter: 2013Q1

REPORT INFORMATION
  Report Type: Spontaneous
  Country: US (occurrence: None)
  Receive Date: 20130305
  Receipt Date: 20130305
  Transmission Date: 20140127
  Serious: Yes (Other)
  Sender: FDA-Public Use
  Company Number: 163-21880-11113022

PATIENT
  Age: 68 Year
  Sex: Female

DRUGS (9)
  1. REVLIMID [Suspect]
     Indication: PLASMA CELL MYELOMA
     Dosage: 10 MG, QD X 21 DAYS, PO?
     Route: 048
     Dates: start: 20110324, end: 20110715
  2. CALCIUM CARBONATE (CALCIUM CARBONATE) (UNKNOWN) [Concomitant]
  3. CITALOPRAM (CITALOPRAM) (UNKNOWN) [Concomitant]
  4. SYNTHROID (LEVOTHYROXINE SODIUM) (UNKNOWN) [Concomitant]
  5. MULTIVITAMINS (MULTIVITAMINS) (UNKNOWN) [Concomitant]
  6. ASPIRIN (ACETYLSALICYLIC ACID) (UNKNOWN) (ACETYLSALICYLIC ACID) [Concomitant]
  7. FERROUS SULFATE (FERROUS SULFATE) (UNKNOWN) [Concomitant]
  8. OXYCODONE (OXYCODONE) (UNKNOWN) (OXYCODONE) [Concomitant]
  9. OS-CAL (OS-CAL) (UNKNOWN) [Concomitant]

REACTIONS (4)
  - Neutropenia [None]
  - White blood cell count decreased [None]
  - Thrombocytopenia [None]
  - Anaemia [None]
